FAERS Safety Report 8413388-1 (Version None)
Quarter: 2012Q2

REPORT INFORMATION
  Report Type: 
  Country: None (occurrence: None)
  Receive Date: 20120605
  Receipt Date: 20120531
  Transmission Date: 20120825
  Serious: Yes (Hospitalization, Other)
  Sender: FDA-Public Use
  Company Number: PHHO2011ES15350

PATIENT
  Sex: Male
  Weight: 72.4 kg

DRUGS (12)
  1. BLINDED NO TREATMENT RECEIVED [Suspect]
     Indication: CARDIAC FAILURE ACUTE
     Dosage: CODE NOT BROKEN
     Route: 048
     Dates: start: 20110317
  2. PLACEBO [Suspect]
     Indication: CARDIAC FAILURE ACUTE
     Dosage: CODE NOT BROKEN
     Route: 048
     Dates: start: 20110317
  3. FUROSEMIDE [Concomitant]
     Indication: CARDIAC FAILURE CHRONIC
     Dosage: 40 MG, (80-40-0)
     Dates: start: 20110714
  4. DOPAMINE HCL [Suspect]
  5. LEVOSIMENDAN [Suspect]
  6. CARVEDILOL [Concomitant]
     Indication: CARDIAC FAILURE CHRONIC
     Dosage: 3.129 MG, BID
     Dates: start: 20110712
  7. MILRINONE LACTATE [Suspect]
     Dosage: 200 MG/ 24H
     Dates: start: 20110615
  8. FUROSEMIDE [Suspect]
  9. BLINDED ALISKIREN [Suspect]
     Indication: CARDIAC FAILURE ACUTE
     Dosage: CODE NOT BROKEN
     Route: 048
     Dates: start: 20110317
  10. ATORVASTATIN CALCIUM [Concomitant]
     Indication: PROPHYLAXIS
     Dosage: 10 MG, 24 H
     Dates: start: 20110613
  11. INSULINE [Concomitant]
     Indication: TYPE 2 DIABETES MELLITUS
     Dosage: 30-10-40
     Dates: start: 20110711
  12. HYGROTON [Concomitant]
     Indication: CARDIAC FAILURE CHRONIC
     Dosage: 25 MG/ 24 H
     Dates: start: 20110709

REACTIONS (3)
  - RENAL FAILURE CHRONIC [None]
  - HYPOKALAEMIA [None]
  - BLOOD CHLORIDE DECREASED [None]
